FAERS Safety Report 15460824 (Version 4)
Quarter: 2019Q1

REPORT INFORMATION
  Report Type: Report from Study
  Country: US (occurrence: US)
  Receive Date: 20181003
  Receipt Date: 20190128
  Transmission Date: 20190417
  Serious: Yes (Hospitalization)
  Sender: FDA-Public Use
  Company Number: US-ACTELION-A-NJ2018-176748

PATIENT
  Age: 68 Year
  Sex: Female

DRUGS (2)
  1. OPSUMIT [Suspect]
     Active Substance: MACITENTAN
     Indication: PULMONARY ARTERIAL HYPERTENSION
     Dosage: 10 MG, QD
     Route: 048
     Dates: start: 20180612, end: 20181205
  2. UPTRAVI [Suspect]
     Active Substance: SELEXIPAG
     Indication: PULMONARY ARTERIAL HYPERTENSION
     Dosage: 400 MCG, BID
     Route: 048
     Dates: start: 20181010, end: 20181026

REACTIONS (8)
  - Mitral valve disease [Unknown]
  - Nausea [Unknown]
  - Asthenia [Unknown]
  - Condition aggravated [Recovered/Resolved]
  - Dizziness [Unknown]
  - Pulmonary hypertension [Recovered/Resolved]
  - Fatigue [Unknown]
  - Cardiac disorder [Recovered/Resolved]

NARRATIVE: CASE EVENT DATE: 20180910
